FAERS Safety Report 6959012-6 (Version None)
Quarter: 2010Q3

REPORT INFORMATION
  Report Type: 
  Country: None (occurrence: None)
  Receive Date: 20100831
  Receipt Date: 20100819
  Transmission Date: 20110219
  Serious: Yes (Hospitalization)
  Sender: FDA-Public Use
  Company Number: JP-ELI_LILLY_AND_COMPANY-JP201007003517

PATIENT
  Age: 57 Year
  Sex: Female
  Weight: 52 kg

DRUGS (9)
  1. ALIMTA [Suspect]
     Indication: LUNG ADENOCARCINOMA
     Dosage: 700 MG, UNKNOWN
     Route: 042
     Dates: start: 20100708, end: 20100708
  2. CARBOPLATIN [Concomitant]
     Indication: LUNG ADENOCARCINOMA
     Dosage: 500 MG, UNKNOWN
     Route: 042
     Dates: start: 20100708, end: 20100708
  3. IRESSA [Concomitant]
     Indication: LUNG ADENOCARCINOMA
     Dosage: UNK, UNKNOWN
     Route: 048
  4. PANVITAN [Concomitant]
     Dosage: UNK, UNKNOWN
     Route: 048
  5. GRANISETRON HYDROCHLORIDE [Concomitant]
     Dosage: 3 MG, UNKNOWN
     Route: 042
  6. DECADRON [Concomitant]
     Dosage: UNK, UNKNOWN
     Route: 048
  7. BISOPROLOL FUMARATE [Concomitant]
     Dosage: UNK, UNKNOWN
     Route: 048
  8. FLUITRAN [Concomitant]
     Dosage: UNK, UNKNOWN
     Route: 048
  9. PREDNISOLONE [Concomitant]
     Dosage: UNK, UNKNOWN
     Route: 065

REACTIONS (8)
  - ABDOMINAL PAIN [None]
  - BLOOD PRESSURE INCREASED [None]
  - HEADACHE [None]
  - HYPERHIDROSIS [None]
  - MALAISE [None]
  - OFF LABEL USE [None]
  - SEROTONIN SYNDROME [None]
  - VOMITING [None]
